FAERS Safety Report 13938437 (Version 3)
Quarter: 2018Q3

REPORT INFORMATION
  Report Type: Spontaneous
  Country: US (occurrence: US)
  Receive Date: 20170905
  Receipt Date: 20180716
  Transmission Date: 20181010
  Serious: Yes (Hospitalization)
  Sender: FDA-Public Use
  Company Number: US-DSJP-DSU-2017-134455

PATIENT

DRUGS (2)
  1. BENICAR HCT [Suspect]
     Active Substance: HYDROCHLOROTHIAZIDE\OLMESARTAN MEDOXOMIL
     Indication: HYPERTENSION
     Dosage: 40/25MG, UNK
     Route: 048
     Dates: start: 20070627, end: 20110501
  2. BENICAR HCT [Suspect]
     Active Substance: HYDROCHLOROTHIAZIDE\OLMESARTAN MEDOXOMIL
     Dosage: 40/12.5MG, QD
     Route: 048

REACTIONS (6)
  - Weight decreased [Unknown]
  - Constipation [Not Recovered/Not Resolved]
  - Gastric polyps [Recovered/Resolved]
  - Diarrhoea [Not Recovered/Not Resolved]
  - Gastritis [Recovered/Resolved]
  - Large intestine polyp [Recovered/Resolved]

NARRATIVE: CASE EVENT DATE: 20100526
